FAERS Safety Report 9172976 (Version 1)
Quarter: 2013Q1

REPORT INFORMATION
  Report Type: Spontaneous
  Country: US (occurrence: None)
  Receive Date: 20130313
  Receipt Date: 20130313
  Transmission Date: 20140127
  Serious: Yes (Other)
  Sender: FDA-Public Use
  Company Number: JPI-P-030314

PATIENT
  Age: 34 Year
  Sex: Female

DRUGS (1)
  1. XYREM [Suspect]
     Indication: CATAPLEXY
     Dosage: (3 GM, 2 IN 1 D), ORAL
     Route: 048
     Dates: start: 20130208, end: 201302

REACTIONS (5)
  - Loss of consciousness [None]
  - Asthenia [None]
  - Dysstasia [None]
  - Urinary incontinence [None]
  - Feeling abnormal [None]
